FAERS Safety Report 16000656 (Version 2)
Quarter: 2021Q1

REPORT INFORMATION
  Report Type: Spontaneous
  Country: GB (occurrence: GB)
  Receive Date: 20190225
  Receipt Date: 20210129
  Transmission Date: 20210419
  Serious: Yes (Other)
  Sender: FDA-Public Use
  Company Number: GB-MYLANLABS-2019M1015493

PATIENT
  Sex: Male

DRUGS (5)
  1. DOXYCYCLINE. [Suspect]
     Active Substance: DOXYCYCLINE
     Indication: GONOCOCCAL INFECTION
  2. CEFTRIAXONE. [Suspect]
     Active Substance: CEFTRIAXONE
     Indication: GONORRHOEA
     Dosage: SINGLE DOSE
     Route: 030
     Dates: start: 2018, end: 2018
  3. DOXYCYCLINE. [Suspect]
     Active Substance: DOXYCYCLINE
     Indication: GONORRHOEA
     Dosage: 100 MG, 0.5 DAY
     Route: 048
     Dates: start: 2018, end: 2018
  4. CEFTRIAXONE. [Suspect]
     Active Substance: CEFTRIAXONE
     Indication: GONOCOCCAL INFECTION
  5. SPECTINOMYCIN. [Suspect]
     Active Substance: SPECTINOMYCIN
     Indication: GONOCOCCAL INFECTION
     Dosage: SINGLE DOSE
     Route: 030
     Dates: start: 2018, end: 2018

REACTIONS (3)
  - Drug resistance [Unknown]
  - Pathogen resistance [Unknown]
  - Treatment failure [Unknown]

NARRATIVE: CASE EVENT DATE: 2018
